FAERS Safety Report 4564578-X (Version None)
Quarter: 2005Q1

REPORT INFORMATION
  Report Type: 
  Country: None (occurrence: None)
  Receive Date: 20050126
  Receipt Date: 20050105
  Transmission Date: 20050727
  Serious: Yes (Hospitalization)
  Sender: FDA-Public Use
  Company Number: A02200500018

PATIENT
  Age: 83 Year
  Sex: Female

DRUGS (5)
  1. STILNOX - (ZOLPIDEM) - TABLET - 10 MG [Suspect]
     Indication: SLEEP DISORDER
     Dosage: ORAL
     Route: 048
     Dates: start: 20040207, end: 20040209
  2. SPIRONOLACTONE [Suspect]
     Dosage: 1 UNIT OD ORAL
     Route: 048
     Dates: end: 20040209
  3. COVERSYL (PERINDOPRIL) [Concomitant]
  4. FUROSEMIDE [Concomitant]
  5. BISOPROLOL FUMARATE [Concomitant]

REACTIONS (7)
  - FALL [None]
  - HYPONATRAEMIA [None]
  - HYPOTENSION [None]
  - NAUSEA [None]
  - SKULL FRACTURE [None]
  - VESTIBULAR DISORDER [None]
  - WOUND [None]
